FAERS Safety Report 25620442 (Version 1)
Quarter: 2025Q3

REPORT INFORMATION
  Report Type: Report from Study
  Country: US (occurrence: US)
  Receive Date: 20250730
  Receipt Date: 20250730
  Transmission Date: 20251021
  Serious: Yes (Death)
  Sender: BIOGEN
  Company Number: US-BIOGEN-2025BI01318497

PATIENT
  Age: 84 Year
  Sex: Male

DRUGS (1)
  1. QALSODY [Suspect]
     Active Substance: TOFERSEN
     Indication: Amyotrophic lateral sclerosis
     Route: 050
     Dates: start: 20250507, end: 20250507

REACTIONS (1)
  - Death [Fatal]

NARRATIVE: CASE EVENT DATE: 20250614
